FAERS Safety Report 13916038 (Version 3)
Quarter: 2017Q3

REPORT INFORMATION
  Report Type: Spontaneous
  Country: US (occurrence: US)
  Receive Date: 20170829
  Receipt Date: 20170925
  Transmission Date: 20171127
  Serious: Yes (Other)
  Sender: FDA-Public Use
  Company Number: US-TOLMAR, INC.-2017US011268

PATIENT
  Age: 49 Year
  Sex: Male

DRUGS (4)
  1. CIALIS [Concomitant]
     Active Substance: TADALAFIL
     Dosage: 5 MG, DAILY
  2. ALPRAZOLAM. [Concomitant]
     Active Substance: ALPRAZOLAM
     Dosage: UNK, PRN
  3. ELIGARD [Suspect]
     Active Substance: LEUPROLIDE ACETATE
     Dosage: 45 MG, 6 MONTH DOSE
     Route: 058
     Dates: start: 20170502
  4. ELIGARD [Suspect]
     Active Substance: LEUPROLIDE ACETATE
     Indication: PROSTATE CANCER
     Dosage: 45 MG, 6 MONTH DOSE
     Route: 058
     Dates: start: 20161026

REACTIONS (3)
  - Prostatic specific antigen increased [Unknown]
  - Hormone-refractory prostate cancer [Unknown]
  - Drug ineffective [Unknown]

NARRATIVE: CASE EVENT DATE: 20170515
